FAERS Safety Report 9366945 (Version 2)
Quarter: 2013Q2

REPORT INFORMATION
  Report Type: Report from Study
  Country: BR (occurrence: BR)
  Receive Date: 20130625
  Receipt Date: 20130625
  Transmission Date: 20140414
  Serious: Yes (Other)
  Sender: FDA-Public Use
  Company Number: PHHY2013BR061589

PATIENT
  Sex: Female

DRUGS (6)
  1. DIOVAN [Suspect]
     Indication: HYPERTENSION
     Dosage: 2 DF, (320 MG) DAILY
     Route: 048
  2. APRESOLIN [Suspect]
     Indication: HYPERTENSION
     Dosage: 3 DF, (50 MG, 2 TABLETS IN THE MORNING AND 1 TABLET AT NIGHT) DAILY
     Route: 048
     Dates: start: 201301
  3. APRESOLIN [Suspect]
     Dosage: 3 DF, (50 MG, 2 TABLETS IN THE MORNING AND 1 TABLET AT NIGHT) DAILY
     Route: 048
  4. CONCOR [Suspect]
     Indication: HYPERTENSION
     Dosage: 1 DF, (10MG) DAILY
     Route: 048
  5. HYDROCHLOROTHIAZIDE [Suspect]
     Indication: HYPERTENSION
     Dosage: 1 DF, (25 MG) DAILY
     Route: 048
  6. ATENSINA [Suspect]
     Indication: HYPERTENSION
     Dosage: 2 DF, (0,200 MG) DAILY
     Route: 048

REACTIONS (1)
  - Blood pressure increased [Recovering/Resolving]
